FAERS Safety Report 10671492 (Version 1)
Quarter: 2014Q4

REPORT INFORMATION
  Report Type: Report from Study
  Country: FR (occurrence: FR)
  Receive Date: 20141223
  Receipt Date: 20141223
  Transmission Date: 20150529
  Serious: Yes (Other)
  Sender: FDA-Public Use
  Company Number: PHHY2014FR163925

PATIENT
  Age: 10 Year
  Sex: Male
  Weight: 27.8 kg

DRUGS (1)
  1. SOMATROPIN [Suspect]
     Active Substance: SOMATROPIN
     Indication: GROWTH HORMONE DEFICIENCY
     Dosage: 8.4 MG, QW
     Route: 058
     Dates: start: 20121112

REACTIONS (3)
  - VIIth nerve paralysis [Recovered/Resolved]
  - Seizure [Recovered/Resolved]
  - Epilepsy [Recovered/Resolved]

NARRATIVE: CASE EVENT DATE: 201410
